FAERS Safety Report 18387228 (Version 1)
Quarter: 2020Q4

REPORT INFORMATION
  Report Type: Spontaneous
  Country: US (occurrence: US)
  Receive Date: 20201014
  Receipt Date: 20201014
  Transmission Date: 20210114
  Serious: Yes (Hospitalization)
  Sender: FDA-Public Use
  Company Number: None

PATIENT
  Age: 85 Year
  Sex: Female

DRUGS (16)
  1. DONEPEZIL. [Concomitant]
     Active Substance: DONEPEZIL
  2. ATORVASTATIN [Concomitant]
     Active Substance: ATORVASTATIN
  3. FAMOTIDINE. [Concomitant]
     Active Substance: FAMOTIDINE
  4. GLUCOSAMINE [Concomitant]
     Active Substance: GLUCOSAMINE
  5. HUMIRA [Suspect]
     Active Substance: ADALIMUMAB
     Indication: PSORIASIS
     Route: 058
     Dates: start: 20190319
  6. CITALOPRAM [Concomitant]
     Active Substance: CITALOPRAM HYDROBROMIDE
  7. MULTIVITAMIN [Concomitant]
     Active Substance: VITAMINS
  8. LYRICA [Concomitant]
     Active Substance: PREGABALIN
  9. MAGENSIUM [Concomitant]
  10. METOPROL SUC ER [Concomitant]
  11. VITAMIN C [Concomitant]
     Active Substance: ASCORBIC ACID
  12. VITAMIN D3 [Concomitant]
     Active Substance: CHOLECALCIFEROL
  13. LUTEIN [Concomitant]
     Active Substance: LUTEIN
  14. METHENAMINE [Concomitant]
     Active Substance: METHENAMINE
  15. AMILORIDE [Concomitant]
     Active Substance: AMILORIDE
  16. PRAMIPEXOLE. [Concomitant]
     Active Substance: PRAMIPEXOLE

REACTIONS (2)
  - Pneumonia [None]
  - Therapy interrupted [None]

NARRATIVE: CASE EVENT DATE: 20200901
